FAERS Safety Report 8345382-3 (Version None)
Quarter: 2012Q2

REPORT INFORMATION
  Report Type: 
  Country: None (occurrence: None)
  Receive Date: 20120508
  Receipt Date: 20120504
  Transmission Date: 20120825
  Serious: Yes (Other)
  Sender: FDA-Public Use
  Company Number: US-PFIZER INC-2012109943

PATIENT
  Sex: Male
  Weight: 97.506 kg

DRUGS (4)
  1. NAPROXEN [Concomitant]
     Indication: OEDEMA MOUTH
  2. PREPARATION H [Suspect]
     Indication: HAEMORRHOIDS
     Dosage: UNK,DAILY
     Dates: start: 20120501, end: 20120503
  3. NAPROXEN [Concomitant]
     Indication: ORAL INFECTION
     Dosage: 500 MG, DAILY
     Dates: start: 20120502, end: 20120503
  4. NAPROXEN [Concomitant]
     Indication: TOOTH DISORDER

REACTIONS (1)
  - HAEMORRHAGE [None]
